FAERS Safety Report 8274054-9 (Version None)
Quarter: 2012Q2

REPORT INFORMATION
  Report Type: 
  Country: None (occurrence: None)
  Receive Date: 20120411
  Receipt Date: 20120402
  Transmission Date: 20120825
  Serious: Yes (Life-Threatening)
  Sender: FDA-Public Use
  Company Number: CA-FRI-1000029685

PATIENT
  Age: 28 Year

DRUGS (2)
  1. ESCITALOPRAM [Suspect]
  2. ESCITALOPRAM [Suspect]

REACTIONS (4)
  - SUICIDAL IDEATION [None]
  - DEPRESSION [None]
  - SELF-INJURIOUS IDEATION [None]
  - CRYING [None]
